FAERS Safety Report 24312070 (Version 1)
Quarter: 2024Q3

REPORT INFORMATION
  Report Type: Spontaneous
  Country: US (occurrence: None)
  Receive Date: 20240911
  Receipt Date: 20240911
  Transmission Date: 20241016
  Serious: No
  Sender: Public
  Company Number: None

PATIENT
  Sex: Female

DRUGS (12)
  1. AMBRISENTAN [Suspect]
     Active Substance: AMBRISENTAN
     Indication: Pulmonary hypertension
     Dosage: FREQUENCY : DAILY;?
     Route: 048
  2. LISINOPRIL [Concomitant]
     Active Substance: LISINOPRIL
  3. DIAZEPAM [Concomitant]
     Active Substance: DIAZEPAM
  4. KINERET [Concomitant]
     Active Substance: ANAKINRA
  5. FOLIC ACID [Concomitant]
     Active Substance: FOLIC ACID
  6. PREDNISONE [Concomitant]
     Active Substance: PREDNISONE
  7. XARELTO [Concomitant]
     Active Substance: RIVAROXABAN
  8. IRON TR [Concomitant]
  9. LASIX [Concomitant]
     Active Substance: FUROSEMIDE
  10. METHYLDOPATE HCL [Concomitant]
  11. TADALAFIL [Concomitant]
     Active Substance: TADALAFIL
  12. KEPPRA [Concomitant]
     Active Substance: LEVETIRACETAM

REACTIONS (1)
  - Off label use [None]
